FAERS Safety Report 9528167 (Version 1)
Quarter: 2013Q1

REPORT INFORMATION
  Report Type: Spontaneous
  Country: US (occurrence: None)
  Receive Date: 20130314
  Receipt Date: 20130314
  Transmission Date: 20140127
  Serious: Yes (Other)
  Sender: FDA-Public Use
  Company Number: 1211USA009585

PATIENT
  Age: 64 Year
  Sex: Male

DRUGS (8)
  1. VICTRELIS [Suspect]
     Indication: HEPATITIS C
     Route: 048
     Dates: start: 201205
  2. PEGINTRON [Suspect]
     Dates: start: 201204
  3. RIBASPHERE (RIBAVIRIN) [Suspect]
  4. LACTULOSE (LACTULOSE) [Concomitant]
  5. DIOVAN (VALSARTAN)_ [Concomitant]
  6. OMEPRAZOLE (OMEPRAZOLE) [Concomitant]
  7. ACETAMINOPHEN (ACETAMINOPHEN) [Concomitant]
  8. CETIRIZINE HYDROCHLORIDE (CETIRIZINE HYDROCHLORIDE) [Concomitant]

REACTIONS (2)
  - Asthenia [None]
  - Fatigue [None]
